FAERS Safety Report 21370358 (Version 4)
Quarter: 2022Q4

REPORT INFORMATION
  Report Type: Spontaneous
  Country: US (occurrence: US)
  Receive Date: 20220923
  Receipt Date: 20221019
  Transmission Date: 20230113
  Serious: No
  Sender: FDA-Public Use
  Company Number: US-PFIZER INC-202201179606

PATIENT
  Age: 65 Year
  Sex: Female
  Weight: 58.97 kg

DRUGS (1)
  1. PAXLOVID [Suspect]
     Active Substance: NIRMATRELVIR\RITONAVIR
     Indication: COVID-19 treatment
     Dosage: UNK

REACTIONS (5)
  - Dysgeusia [Not Recovered/Not Resolved]
  - Oral discomfort [Unknown]
  - Insomnia [Unknown]
  - Speech disorder [Unknown]
  - Illness [Unknown]
